FAERS Safety Report 19501002 (Version 8)
Quarter: 2022Q2

REPORT INFORMATION
  Report Type: Report from Study
  Country: PL (occurrence: None)
  Receive Date: 20210707
  Receipt Date: 20220425
  Transmission Date: 20220721
  Serious: Yes (Life-Threatening, Hospitalization)
  Sender: FDA-Public Use
  Company Number: PL-ROCHE-2825468

PATIENT
  Age: 71 Year
  Sex: Female
  Weight: 71 kg

DRUGS (11)
  1. TIRAGOLUMAB [Suspect]
     Active Substance: TIRAGOLUMAB
     Indication: Non-small cell lung cancer
     Dosage: IV INFUSION Q3W ON DAY 1 OF EACH 21-DAY CYCLE (AS PER PROTOCOL)?START DATE OF MOST RECENT DOSE OF S
     Route: 042
     Dates: start: 20210430
  2. ATEZOLIZUMAB [Suspect]
     Active Substance: ATEZOLIZUMAB
     Indication: Non-small cell lung cancer
     Dosage: ATEZOLIZUMAB 1200 MILLIGRAMS (MG) ADMINISTERED BY INTRAVENOUS (IV) INFUSION Q3W ON DAY 1 OF EACH 21-
     Route: 041
     Dates: start: 20210430
  3. BETAHISTINE [Concomitant]
     Active Substance: BETAHISTINE
     Indication: Vertigo
     Dates: start: 1981
  4. NILOGRIN [Concomitant]
     Indication: Vertigo
     Dates: start: 2020
  5. SYMPRAMOL [Concomitant]
     Indication: Neurosis
     Dates: start: 2020
  6. CITALOPRAM HYDROBROMIDE [Concomitant]
     Active Substance: CITALOPRAM HYDROBROMIDE
     Indication: Neurosis
     Dates: start: 2019
  7. NASEN [Concomitant]
     Indication: Neurosis
     Dates: start: 2019
  8. IPP (POLAND) [Concomitant]
     Indication: Ulcer
     Route: 048
     Dates: start: 20210521
  9. ENOXAPARIN SODIUM [Concomitant]
     Active Substance: ENOXAPARIN SODIUM
     Route: 058
     Dates: start: 20210521, end: 20210601
  10. POTASSIUM CHLORIDE [Concomitant]
     Active Substance: POTASSIUM CHLORIDE
     Route: 048
     Dates: start: 20210521
  11. DOBROSON [Concomitant]
     Indication: Insomnia
     Dates: start: 20210525, end: 20210602

REACTIONS (2)
  - Cardiac tamponade [Recovered/Resolved]
  - Infusion related reaction [Recovered/Resolved]

NARRATIVE: CASE EVENT DATE: 20210430
